FAERS Safety Report 5444193-6 (Version None)
Quarter: 2007Q3

REPORT INFORMATION
  Report Type: 
  Country: None (occurrence: None)
  Receive Date: 20070831
  Receipt Date: 20070817
  Transmission Date: 20080115
  Serious: Yes (Death)
  Sender: FDA-Public Use
  Company Number: 2007S1007786

PATIENT
  Sex: Male

DRUGS (2)
  1. PROBENECID [Suspect]
     Indication: GOUTY ARTHRITIS
     Dosage: 1000 MG; DAILY; ORAL
     Route: 048
     Dates: start: 19640401, end: 19650918
  2. COLCHICINE [Concomitant]

REACTIONS (13)
  - ACIDOSIS [None]
  - ANOREXIA [None]
  - ASCITES [None]
  - AZOTAEMIA [None]
  - BACTERIA URINE IDENTIFIED [None]
  - BLOOD PRESSURE INCREASED [None]
  - BLOOD UREA INCREASED [None]
  - BLOOD URIC ACID INCREASED [None]
  - CARDIOMEGALY [None]
  - ESCHERICHIA INFECTION [None]
  - HAEMOGLOBIN DECREASED [None]
  - OEDEMA PERIPHERAL [None]
  - SOMNOLENCE [None]
